FAERS Safety Report 10408949 (Version 4)
Quarter: 2018Q4

REPORT INFORMATION
  Report Type: Report from Study
  Country: US (occurrence: US)
  Receive Date: 20140826
  Receipt Date: 20181116
  Transmission Date: 20190204
  Serious: Yes (Hospitalization, Other)
  Sender: FDA-Public Use
  Company Number: US-SA-2014SA112650

PATIENT
  Age: 60 Year
  Sex: Male

DRUGS (2)
  1. AGALSIDASE BETA [Suspect]
     Active Substance: AGALSIDASE BETA
     Indication: FABRY^S DISEASE
     Dosage: 70 MG,QOW
     Route: 041
     Dates: start: 20030701, end: 20170216
  2. AGALSIDASE BETA [Suspect]
     Active Substance: AGALSIDASE BETA
     Dosage: UNK
     Route: 041

REACTIONS (10)
  - Pain in extremity [Not Recovered/Not Resolved]
  - Cardiac disorder [Unknown]
  - Neuropathy peripheral [Unknown]
  - End stage renal disease [Unknown]
  - Abdominal pain upper [Not Recovered/Not Resolved]
  - Cardiac failure [Unknown]
  - Ill-defined disorder [Unknown]
  - Oedema peripheral [Recovering/Resolving]
  - Acute respiratory failure [Unknown]
  - Skin ulcer [Recovered/Resolved]

NARRATIVE: CASE EVENT DATE: 201402
